FAERS Safety Report 24654164 (Version 4)
Quarter: 2025Q1

REPORT INFORMATION
  Report Type: Spontaneous
  Country: US (occurrence: US)
  Receive Date: 20241122
  Receipt Date: 20250114
  Transmission Date: 20250409
  Serious: Yes (Hospitalization)
  Sender: PFIZER
  Company Number: US-PFIZER INC-202400306751

PATIENT
  Age: 75 Year
  Sex: Female

DRUGS (11)
  1. IBRANCE [Suspect]
     Active Substance: PALBOCICLIB
     Indication: Breast cancer female
     Route: 048
     Dates: start: 20220322
  2. LETROZOLE [Concomitant]
     Active Substance: LETROZOLE
  3. ASPIRIN [Concomitant]
     Active Substance: ASPIRIN
  4. METOPROLOL [Concomitant]
     Active Substance: METOPROLOL
  5. CITALOPRAM [Concomitant]
     Active Substance: CITALOPRAM
  6. FUROSEMIDE [Concomitant]
     Active Substance: FUROSEMIDE
  7. CALCIUM [Concomitant]
     Active Substance: CALCIUM
  8. CLOPIDOGREL [Concomitant]
     Active Substance: CLOPIDOGREL BISULFATE
  9. ATORVASTATIN [Concomitant]
     Active Substance: ATORVASTATIN
  10. ENTRESTO [Concomitant]
     Active Substance: SACUBITRIL\VALSARTAN
  11. VITAMINS NOS [Concomitant]
     Active Substance: VITAMINS

REACTIONS (4)
  - Hypotension [Unknown]
  - Diarrhoea [Unknown]
  - Clostridium difficile colitis [Unknown]
  - Anaemia [Unknown]
